FAERS Safety Report 5779950-X (Version None)
Quarter: 2008Q2

REPORT INFORMATION
  Report Type: 
  Country: None (occurrence: None)
  Receive Date: 20080620
  Receipt Date: 20080620
  Transmission Date: 20081010
  Serious: Yes (Other)
  Sender: FDA-Public Use
  Company Number: None

PATIENT
  Sex: Female
  Weight: 102.3 kg

DRUGS (1)
  1. HEPARIN [Suspect]
     Indication: ANTICOAGULANT THERAPY
     Dosage: SEE PRIOR NOTES
     Dates: start: 20080110, end: 20080121

REACTIONS (4)
  - ARTERIAL THROMBOSIS [None]
  - COMPLICATIONS OF TRANSPLANTED KIDNEY [None]
  - PHARMACEUTICAL PRODUCT COMPLAINT [None]
  - VENOUS THROMBOSIS [None]
